FAERS Safety Report 23296527 (Version 2)
Quarter: 2023Q4

REPORT INFORMATION
  Report Type: Report from Study
  Country: US (occurrence: US)
  Receive Date: 20231214
  Receipt Date: 20231221
  Transmission Date: 20240110
  Serious: Yes (Hospitalization, Other)
  Sender: FDA-Public Use
  Company Number: US-REGENERON PHARMACEUTICALS, INC.-2023-148852

PATIENT
  Sex: Female

DRUGS (1)
  1. CEMIPLIMAB [Suspect]
     Active Substance: CEMIPLIMAB
     Indication: Squamous cell carcinoma
     Dosage: 350 MG, Q3W
     Route: 042
     Dates: start: 20231130

REACTIONS (5)
  - Swelling face [Unknown]
  - Eye swelling [Unknown]
  - Mouth swelling [Unknown]
  - Speech disorder [Unknown]
  - Skin lesion [Unknown]

NARRATIVE: CASE EVENT DATE: 20231201
